FAERS Safety Report 6156705-8 (Version None)
Quarter: 2009Q2

REPORT INFORMATION
  Report Type: 
  Country: None (occurrence: None)
  Receive Date: 20090413
  Receipt Date: 20090413
  Transmission Date: 20091009
  Serious: Yes (Hospitalization)
  Sender: FDA-Public Use
  Company Number: None

PATIENT
  Sex: Female
  Weight: 86.5 kg

DRUGS (3)
  1. CYTARABINE [Suspect]
     Dosage: 1386 MG
     Dates: end: 20090302
  2. DAUNORUBICIN HCL [Suspect]
     Dosage: 534 MG
     Dates: end: 20090226
  3. ETOPOSIDE [Suspect]
     Dosage: 594 MG
     Dates: end: 20090226

REACTIONS (7)
  - ACUTE MYELOID LEUKAEMIA RECURRENT [None]
  - BACTERAEMIA [None]
  - CARDIAC ARREST [None]
  - PLEURAL EFFUSION [None]
  - PNEUMONIA [None]
  - PULMONARY OEDEMA [None]
  - SHOCK [None]
